FAERS Safety Report 4645725-8 (Version None)
Quarter: 2005Q2

REPORT INFORMATION
  Report Type: 
  Country: None (occurrence: None)
  Receive Date: 20050425
  Receipt Date: 20050411
  Transmission Date: 20051028
  Serious: Yes (Hospitalization)
  Sender: FDA-Public Use
  Company Number: 2005059037

PATIENT
  Age: 52 Year
  Sex: Male
  Weight: 91 kg

DRUGS (5)
  1. BEXTRA [Suspect]
     Indication: ARTHRITIS
     Dosage: 10 MG (10 MG, 1 IN 1 D), ORAL
     Route: 048
     Dates: end: 20050330
  2. TRAMADOL HCL [Suspect]
     Indication: ARTHRITIS
     Dosage: ORAL
     Route: 048
     Dates: start: 20050201
  3. ROFECOXIB [Concomitant]
  4. ACETAMINOPHEN [Concomitant]
  5. GLUCOSAMINE (GLUCOSAMINE) [Concomitant]

REACTIONS (4)
  - ACUTE CORONARY SYNDROME [None]
  - DYSPEPSIA [None]
  - GASTRITIS [None]
  - LOWER RESPIRATORY TRACT INFECTION [None]
